FAERS Safety Report 13619629 (Version 1)
Quarter: 2017Q2

REPORT INFORMATION
  Report Type: Spontaneous
  Country: US (occurrence: US)
  Receive Date: 20170606
  Receipt Date: 20170606
  Transmission Date: 20170830
  Serious: Yes (Hospitalization)
  Sender: FDA-Public Use
  Company Number: None

PATIENT
  Age: 65 Year
  Sex: Female

DRUGS (11)
  1. CLOPIDOGREL [Concomitant]
     Active Substance: CLOPIDOGREL BISULFATE
  2. BUT/APAP/CAF [Concomitant]
  3. SENSIPAR [Suspect]
     Active Substance: CINACALCET HYDROCHLORIDE
     Indication: HYPERPARATHYROIDISM
     Route: 048
     Dates: start: 20170508
  4. HUMALOG [Concomitant]
     Active Substance: INSULIN LISPRO
  5. NOVOLOG [Concomitant]
     Active Substance: INSULIN ASPART
  6. AZELASTINE SPR [Concomitant]
  7. ATORVASTATIN [Concomitant]
     Active Substance: ATORVASTATIN
  8. NITROGLYCERIN. [Concomitant]
     Active Substance: NITROGLYCERIN
  9. CARVEDILOL. [Concomitant]
     Active Substance: CARVEDILOL
  10. CLONIDINE. [Concomitant]
     Active Substance: CLONIDINE
  11. PAZEO DRO [Concomitant]

REACTIONS (3)
  - Inappropriate schedule of drug administration [None]
  - Confusional state [None]
  - Muscle spasms [None]

NARRATIVE: CASE EVENT DATE: 20170529
